FAERS Safety Report 13313030 (Version 2)
Quarter: 2017Q3

REPORT INFORMATION
  Report Type: Report from Study
  Country: FR (occurrence: FR)
  Receive Date: 20170309
  Receipt Date: 20170913
  Transmission Date: 20171127
  Serious: Yes (Other)
  Sender: FDA-Public Use
  Company Number: FR-PFIZER INC-2017089266

PATIENT
  Age: 71 Year
  Sex: Female
  Weight: 89.1 kg

DRUGS (31)
  1. CYTARABINE. [Suspect]
     Active Substance: CYTARABINE
     Indication: ACUTE MYELOID LEUKAEMIA
     Dosage: 387.5 MG, DAILY CYCLIC FROM D1 TO D7
     Dates: start: 20170117, end: 20170123
  2. ONDANSETRON [Concomitant]
     Active Substance: ONDANSETRON
     Dosage: UNK
     Dates: start: 20170207, end: 20170207
  3. PRIMPERAN [Concomitant]
     Active Substance: METOCLOPRAMIDE HYDROCHLORIDE
     Dosage: UNK
     Dates: start: 20170207, end: 20170207
  4. AMLODIPIN /00972401/ [Concomitant]
     Active Substance: AMLODIPINE BESYLATE
     Indication: HYPERTENSION
     Dosage: 5 MG, DAILY
     Route: 048
     Dates: start: 20170114, end: 20170207
  5. OXYNORM [Concomitant]
     Active Substance: OXYCODONE HYDROCHLORIDE
     Indication: PAIN
     Dosage: 20 MG, DAILY, (CONTINUED AS NEEDED)
     Route: 042
     Dates: start: 20170208
  6. ALPRAZOLAM. [Concomitant]
     Active Substance: ALPRAZOLAM
     Indication: ANXIETY
     Dosage: 0.5 MG, DAILY
     Route: 048
     Dates: start: 20170207, end: 20170208
  7. TARGOCID [Concomitant]
     Active Substance: TEICOPLANIN
     Indication: SEPSIS
     Dosage: 800 MG, DAILY
     Route: 042
     Dates: start: 20170206, end: 20170207
  8. APROVEL [Concomitant]
     Active Substance: IRBESARTAN
     Indication: HYPERTENSION
     Dosage: 300 MG, DAILY
     Route: 048
     Dates: start: 20170130, end: 20170207
  9. FASTURTEC [Concomitant]
     Active Substance: RASBURICASE
     Indication: TUMOUR LYSIS SYNDROME
     Dosage: 7.5 MG, DAILY
     Route: 042
     Dates: start: 20170207, end: 20170208
  10. MIDAZOLAM [Concomitant]
     Active Substance: MIDAZOLAM HYDROCHLORIDE
     Indication: ANXIETY
     Dosage: 2 MG, DAILY AS NEEDED
     Route: 042
     Dates: start: 20170208
  11. TARGOCID [Concomitant]
     Active Substance: TEICOPLANIN
     Dosage: 400 MG, ALTERNATE DAY
     Route: 042
     Dates: start: 20170208, end: 20170210
  12. TARGOCID [Concomitant]
     Active Substance: TEICOPLANIN
     Dosage: 1 DAY OUT OF 3
     Dates: start: 20170213
  13. HYDREA [Concomitant]
     Active Substance: HYDROXYUREA
     Indication: LEUKOCYTOSIS
     Dosage: 1500 MG, DAILY
     Route: 048
     Dates: start: 20170206, end: 20170207
  14. CHIBRO-CADRON [Concomitant]
     Active Substance: DEXAMETHASONE\NEOMYCIN SULFATE
     Indication: INFECTION PROPHYLAXIS
     Dosage: UNK
     Route: 047
     Dates: start: 20170206
  15. ESIDREX [Concomitant]
     Active Substance: HYDROCHLOROTHIAZIDE
     Indication: HYPERTENSION
     Dosage: 12.5 MG, DAILY
     Route: 048
     Dates: start: 20170130, end: 20170207
  16. VENLAFAXINE [Concomitant]
     Active Substance: VENLAFAXINE HYDROCHLORIDE
     Indication: DEPRESSION
     Dosage: 37.5 MG, DAILY
     Route: 048
     Dates: start: 20170119, end: 20170208
  17. CANCIDAS [Concomitant]
     Active Substance: CASPOFUNGIN ACETATE
     Indication: PYREXIA
  18. GEMTUZUMAB OZOGAMICIN [Suspect]
     Active Substance: GEMTUZUMAB OZOGAMICIN
     Dosage: 5 MG,  DAILY CYCLIC ON D1
     Dates: start: 20170207, end: 20170207
  19. NICARDIPINE [Concomitant]
     Active Substance: NICARDIPINE
     Indication: HYPERTENSION
     Dosage: 10 MG, DAILY
     Route: 042
     Dates: start: 20170207
  20. PIPERACILLIN AND TAZOBACTAM [Concomitant]
     Active Substance: PIPERACILLIN SODIUM\TAZOBACTAM SODIUM
     Dosage: 8 G, DAILY
     Route: 042
     Dates: start: 20170208
  21. NEFOPAM [Concomitant]
     Active Substance: NEFOPAM
     Indication: PAIN
     Dosage: 60 MG, DAILY
     Route: 042
     Dates: start: 20170207
  22. PIPERACILLIN AND TAZOBACTAM [Concomitant]
     Active Substance: PIPERACILLIN SODIUM\TAZOBACTAM SODIUM
     Indication: SEPSIS
     Dosage: 12 G, DAILY
     Route: 042
     Dates: start: 20170121, end: 20170208
  23. GEMTUZUMAB OZOGAMICIN [Suspect]
     Active Substance: GEMTUZUMAB OZOGAMICIN
     Indication: ACUTE MYELOID LEUKAEMIA
     Dosage: 5 MG, DAILY CYCLIC ON D1 AND D4
     Dates: start: 20170117
  24. CYTARABINE. [Suspect]
     Active Substance: CYTARABINE
     Dosage: 1950 MG, CYCLIC ON D1, D3, AND D5
     Dates: start: 20170207, end: 20170211
  25. VANCOMYCIN HCL [Suspect]
     Active Substance: VANCOMYCIN HYDROCHLORIDE
     Indication: SEPSIS
     Dosage: 2600 MG, DAILY
     Route: 042
     Dates: start: 20170202, end: 20170206
  26. ZOPHREN /00955301/ [Concomitant]
     Active Substance: ONDANSETRON
     Dosage: UNK UNK, 2X/DAY
     Dates: start: 20170123, end: 20170123
  27. KARDEGIC [Concomitant]
     Active Substance: ASPIRIN LYSINE
     Indication: THROMBOSIS PROPHYLAXIS
     Dosage: 75 MG, DAILY
     Route: 048
     Dates: start: 20170118, end: 20170207
  28. LEVOTHYROX [Concomitant]
     Active Substance: LEVOTHYROXINE
     Indication: THYROID DISORDER
     Dosage: 150 UG, DAILY
     Route: 048
     Dates: start: 201604, end: 20170208
  29. URSOLVAN [Concomitant]
     Active Substance: URSODIOL
     Dosage: 600 MG, DAILY
     Route: 048
     Dates: start: 20170206, end: 20170208
  30. AZANTAC [Concomitant]
     Active Substance: RANITIDINE HYDROCHLORIDE
     Indication: PROPHYLAXIS AGAINST GASTROINTESTINAL ULCER
     Dosage: 50 MG, DAILY
     Route: 042
     Dates: start: 20170208
  31. CANCIDAS [Concomitant]
     Active Substance: CASPOFUNGIN ACETATE
     Indication: SEPSIS
     Dosage: 70 MG, DAILY
     Route: 042
     Dates: start: 20170206

REACTIONS (4)
  - Acute kidney injury [Not Recovered/Not Resolved]
  - Anuria [Not Recovered/Not Resolved]
  - Pyrexia [Recovered/Resolved]
  - Pyrexia [Recovered/Resolved]

NARRATIVE: CASE EVENT DATE: 20170120
